FAERS Safety Report 4546012-9 (Version None)
Quarter: 2005Q1

REPORT INFORMATION
  Report Type: 
  Country: None (occurrence: None)
  Receive Date: 20050106
  Receipt Date: 20041223
  Transmission Date: 20050727
  Serious: Yes (Hospitalization)
  Sender: FDA-Public Use
  Company Number: 200422429GDDC

PATIENT
  Age: 66 Year
  Sex: 0

DRUGS (7)
  1. METRONIDAZOLE [Suspect]
     Indication: CAMPYLOBACTER INFECTION
     Route: 042
     Dates: start: 20041023, end: 20041025
  2. CO-AMOXICLAV [Suspect]
     Indication: CAMPYLOBACTER INFECTION
     Route: 048
     Dates: start: 20041026
  3. CEFUROXIME [Suspect]
     Indication: CAMPYLOBACTER INFECTION
     Route: 042
     Dates: start: 20041023, end: 20041026
  4. BENDROFLUMETHIAZIDE [Concomitant]
     Route: 048
  5. MEBEVERINE [Concomitant]
     Route: 048
  6. LOPERAMIDE HCL [Concomitant]
     Route: 048
  7. PROCHLORPERAZINE [Concomitant]
     Route: 048

REACTIONS (1)
  - JAUNDICE [None]
